FAERS Safety Report 10033191 (Version 2)
Quarter: 2014Q1

REPORT INFORMATION
  Report Type: Report from Study
  Country: ZA (occurrence: ZA)
  Receive Date: 20140324
  Receipt Date: 20140326
  Transmission Date: 20141002
  Serious: Yes (Hospitalization)
  Sender: FDA-Public Use
  Company Number: ZA-ABBVIE-14P-143-1210225-00

PATIENT
  Sex: Male

DRUGS (7)
  1. RITONAVIR [Suspect]
     Indication: MATERNAL EXPOSURE TIMING UNSPECIFIED
     Route: 064
  2. ATAZANAVIR [Concomitant]
     Indication: MATERNAL EXPOSURE TIMING UNSPECIFIED
     Route: 064
  3. EMTRICITABINE W/TENOFOVIR [Concomitant]
     Indication: MATERNAL EXPOSURE TIMING UNSPECIFIED
     Route: 064
  4. IRON SULFATE [Concomitant]
     Indication: MATERNAL EXPOSURE TIMING UNSPECIFIED
  5. FOLIC ACID [Concomitant]
     Indication: MATERNAL EXPOSURE TIMING UNSPECIFIED
  6. IBUPROFEN [Concomitant]
     Indication: MATERNAL EXPOSURE TIMING UNSPECIFIED
  7. DEPO PROVERA [Concomitant]
     Indication: MATERNAL EXPOSURE TIMING UNSPECIFIED

REACTIONS (2)
  - Foetal distress syndrome [Recovered/Resolved]
  - Foetal exposure during pregnancy [Unknown]
